FAERS Safety Report 19295778 (Version 1)
Quarter: 2021Q2

REPORT INFORMATION
  Report Type: Spontaneous
  Country: CN (occurrence: CN)
  Receive Date: 20210524
  Receipt Date: 20210524
  Transmission Date: 20210717
  Serious: Yes (Other)
  Sender: FDA-Public Use
  Company Number: CN-PFIZER INC-2021531289

PATIENT
  Age: 15 Year
  Sex: Male
  Weight: 50 kg

DRUGS (2)
  1. ZITHROMAX [Suspect]
     Active Substance: AZITHROMYCIN DIHYDRATE
     Indication: ACUTE LYMPHOCYTIC LEUKAEMIA
     Dosage: 0.500 G, 1X/DAY
     Route: 041
     Dates: start: 20210507, end: 20210507
  2. GLUCOSE [Concomitant]
     Active Substance: DEXTROSE
     Indication: ACUTE LYMPHOCYTIC LEUKAEMIA
     Dosage: 500.000 ML, 1X/DAY
     Route: 041
     Dates: start: 20210507, end: 20210507

REACTIONS (2)
  - Off label use [Unknown]
  - Chest pain [Recovered/Resolved]

NARRATIVE: CASE EVENT DATE: 20210507
